FAERS Safety Report 15786897 (Version 3)
Quarter: 2023Q2

REPORT INFORMATION
  Report Type: Spontaneous
  Country: US (occurrence: None)
  Receive Date: 20190103
  Receipt Date: 20230519
  Transmission Date: 20230722
  Serious: Yes (Other)
  Sender: FDA-Public Use
  Company Number: 2018SF47831

PATIENT
  Age: 53 Year
  Sex: Female
  Weight: 109.8 kg

DRUGS (41)
  1. NEXIUM [Suspect]
     Active Substance: ESOMEPRAZOLE MAGNESIUM
     Route: 048
     Dates: start: 2011, end: 2016
  2. NEXIUM 24HR [Suspect]
     Active Substance: ESOMEPRAZOLE MAGNESIUM
     Route: 048
     Dates: end: 2016
  3. PRILOSEC [Suspect]
     Active Substance: OMEPRAZOLE MAGNESIUM
     Route: 048
  4. PRILOSEC [Suspect]
     Active Substance: OMEPRAZOLE MAGNESIUM
     Dosage: GENERIC
  5. PRILOSEC OTC [Suspect]
     Active Substance: OMEPRAZOLE MAGNESIUM
     Route: 048
  6. LANSOPRAZOLE [Suspect]
     Active Substance: LANSOPRAZOLE
  7. ZEGERID [Suspect]
     Active Substance: OMEPRAZOLE\SODIUM BICARBONATE
  8. OMEPRAZOLE\SODIUM BICARBONATE [Suspect]
     Active Substance: OMEPRAZOLE\SODIUM BICARBONATE
  9. ACETAMINOPHEN\BUTABARBITAL\CAFFEINE [Concomitant]
     Active Substance: ACETAMINOPHEN\BUTABARBITAL\CAFFEINE
  10. ZOLPIDEM [Concomitant]
     Active Substance: ZOLPIDEM TARTRATE
  11. ACETAMINOPHEN\HYDROCODONE BITARTRATE [Concomitant]
     Active Substance: ACETAMINOPHEN\HYDROCODONE BITARTRATE
  12. CLONAZEPAM [Concomitant]
     Active Substance: CLONAZEPAM
  13. PAROXETINE [Concomitant]
     Active Substance: PAROXETINE
  14. GLIPIZIDE [Concomitant]
     Active Substance: GLIPIZIDE
  15. PROMETHAZINE [Concomitant]
     Active Substance: PROMETHAZINE HYDROCHLORIDE
  16. AZITHROMYCIN [Concomitant]
     Active Substance: AZITHROMYCIN
  17. BENZONATATE [Concomitant]
     Active Substance: BENZONATATE
  18. ACETAMINOPHEN\OXYCODONE HYDROCHLORIDE [Concomitant]
     Active Substance: ACETAMINOPHEN\OXYCODONE HYDROCHLORIDE
  19. METFORMIN HYDROCHLORIDE [Concomitant]
     Active Substance: METFORMIN HYDROCHLORIDE
  20. NAPROXEN [Concomitant]
     Active Substance: NAPROXEN
  21. HYDROCHLOROTHIAZIDE [Concomitant]
     Active Substance: HYDROCHLOROTHIAZIDE
  22. SIMVASTATIN [Concomitant]
     Active Substance: SIMVASTATIN
  23. HYDROCHLOROTHIAZIDE\TRIAMTERENE [Concomitant]
     Active Substance: HYDROCHLOROTHIAZIDE\TRIAMTERENE
  24. PRAVASTATIN SODIUM [Concomitant]
     Active Substance: PRAVASTATIN SODIUM
  25. MIRTAZAPINE [Concomitant]
     Active Substance: MIRTAZAPINE
  26. FLUCONAZOLE [Concomitant]
     Active Substance: FLUCONAZOLE
  27. AMOXICILLIN-POT CLAV [Concomitant]
  28. BYDUREON [Concomitant]
     Active Substance: EXENATIDE
  29. LANTUS [Concomitant]
     Active Substance: INSULIN GLARGINE
  30. RESTORIL [Concomitant]
     Active Substance: TEMAZEPAM
  31. SERTRALINE HYDROCHLORIDE [Concomitant]
     Active Substance: SERTRALINE HYDROCHLORIDE
  32. HYDROXYZINE HYDROCHLORIDE [Concomitant]
     Active Substance: HYDROXYZINE HYDROCHLORIDE
  33. TERCONAZOLE [Concomitant]
     Active Substance: TERCONAZOLE
  34. AMLODIPINE BESYLATE [Concomitant]
     Active Substance: AMLODIPINE BESYLATE
  35. KETOCONAZOLE [Concomitant]
     Active Substance: KETOCONAZOLE
  36. DOCUSATE CALCIUM [Concomitant]
     Active Substance: DOCUSATE CALCIUM
  37. HYDROMORPHONE HYDROCHLORIDE [Concomitant]
     Active Substance: HYDROMORPHONE HYDROCHLORIDE
  38. LYRICA [Concomitant]
     Active Substance: PREGABALIN
  39. TIZANIDINE HYDROCHLORIDE [Concomitant]
     Active Substance: TIZANIDINE HYDROCHLORIDE
  40. TRIAMTERENE [Concomitant]
     Active Substance: TRIAMTERENE
     Route: 065
  41. CYCLOBENZAPRINE [Concomitant]
     Active Substance: CYCLOBENZAPRINE
     Route: 065

REACTIONS (1)
  - Chronic kidney disease [Not Recovered/Not Resolved]

NARRATIVE: CASE EVENT DATE: 20140101
